FAERS Safety Report 4492680-X (Version None)
Quarter: 2004Q4

REPORT INFORMATION
  Report Type: 
  Country: None (occurrence: None)
  Receive Date: 20041029
  Receipt Date: 20041018
  Transmission Date: 20050328
  Serious: Yes (Disabling, Other)
  Sender: FDA-Public Use
  Company Number: 2004062853

PATIENT
  Sex: Female
  Weight: 130 kg

DRUGS (2)
  1. NEURONTIN [Suspect]
     Indication: MONOPLEGIA
     Dosage: 200 MG (100 MG, 2 IN 1 D), ORAL
     Route: 048
     Dates: start: 20031215
  2. CLOMIPRAMINE HCL [Concomitant]

REACTIONS (7)
  - BLOOD ALKALINE PHOSPHATASE INCREASED [None]
  - BLOOD CALCIUM INCREASED [None]
  - C-REACTIVE PROTEIN INCREASED [None]
  - GAIT DISTURBANCE [None]
  - MAMMARY DUCT ECTASIA [None]
  - PANCREATIC ATROPHY [None]
  - RENAL CYST [None]
